FAERS Safety Report 6819398-X (Version None)
Quarter: 2010Q3

REPORT INFORMATION
  Report Type: 
  Country: None (occurrence: None)
  Receive Date: 20100707
  Receipt Date: 20100706
  Transmission Date: 20110219
  Serious: Yes (Hospitalization, Other)
  Sender: FDA-Public Use
  Company Number: US-ROXANE LABORATORIES, INC.-2010-RO-00792RO

PATIENT
  Age: 63 Year
  Sex: Female

DRUGS (1)
  1. MEGESTROL ACETATE [Suspect]
     Indication: BREAST CANCER
     Dosage: 160 MG

REACTIONS (2)
  - BRAIN OEDEMA [None]
  - MENINGIOMA [None]
